FAERS Safety Report 25118101 (Version 1)
Quarter: 2025Q1

REPORT INFORMATION
  Report Type: Other
  Country: CA (occurrence: CA)
  Receive Date: 20250325
  Receipt Date: 20250325
  Transmission Date: 20250409
  Serious: Yes (Other)
  Sender: DEXCEL LTD.
  Company Number: CA-DEXPHARM-2025-1412

PATIENT
  Age: 75 Year
  Sex: Male

DRUGS (1)
  1. DONEPEZIL [Suspect]
     Active Substance: DONEPEZIL
     Indication: Cognitive disorder

REACTIONS (1)
  - Resting tremor [Recovered/Resolved]
